FAERS Safety Report 10341702 (Version 1)
Quarter: 2014Q3

REPORT INFORMATION
  Report Type: Spontaneous
  Country: US (occurrence: None)
  Receive Date: 20140724
  Receipt Date: 20140724
  Transmission Date: 20150326
  Serious: Yes (Other)
  Sender: FDA-Public Use
  Company Number: None

PATIENT
  Age: 76 Year
  Sex: Male

DRUGS (2)
  1. TASIGNA [Suspect]
     Active Substance: NILOTINIB
     Indication: CHRONIC MYELOID LEUKAEMIA
     Route: 048
     Dates: start: 20140405
  2. TASIGNA [Suspect]
     Active Substance: NILOTINIB
     Indication: METASTATIC NEOPLASM
     Route: 048
     Dates: start: 20140405

REACTIONS (1)
  - Fatigue [None]

NARRATIVE: CASE EVENT DATE: 201405
